FAERS Safety Report 15926643 (Version 3)
Quarter: 2019Q2

REPORT INFORMATION
  Report Type: Spontaneous
  Country: US (occurrence: US)
  Receive Date: 20190206
  Receipt Date: 20190404
  Transmission Date: 20190711
  Serious: No
  Sender: FDA-Public Use
  Company Number: US-SUNOVION-2019SUN000351

PATIENT
  Age: 20 Year
  Sex: Male
  Weight: 146.6 kg

DRUGS (3)
  1. LATUDA [Suspect]
     Active Substance: LURASIDONE HYDROCHLORIDE
     Indication: ANGER
     Dosage: 40 MG QHS FOR APPROX. 2 MONTHS (STOPPED ABOUT TWO WEEKS PRIOR TO THE REPORT)
     Route: 048
     Dates: start: 201812
  2. LATUDA [Suspect]
     Active Substance: LURASIDONE HYDROCHLORIDE
     Dosage: 40 MG, QD
     Route: 048
     Dates: start: 20190107
  3. LATUDA [Suspect]
     Active Substance: LURASIDONE HYDROCHLORIDE
     Indication: PANIC ATTACK
     Dosage: 40 MG QHS
     Route: 048
     Dates: start: 201811

REACTIONS (11)
  - Panic attack [Not Recovered/Not Resolved]
  - Sleep disorder [Unknown]
  - Weight increased [Unknown]
  - Off label use [Unknown]
  - Drug ineffective for unapproved indication [Recovering/Resolving]
  - Anger [Not Recovered/Not Resolved]
  - Aggression [Not Recovered/Not Resolved]
  - Trance [Not Recovered/Not Resolved]
  - Withdrawal syndrome [Unknown]
  - Therapy cessation [Recovering/Resolving]
  - Feeling abnormal [Unknown]

NARRATIVE: CASE EVENT DATE: 201811
